FAERS Safety Report 20884304 (Version 2)
Quarter: 2022Q2

REPORT INFORMATION
  Report Type: Spontaneous
  Country: US (occurrence: US)
  Receive Date: 20220527
  Receipt Date: 20220602
  Transmission Date: 20220721
  Serious: Yes (Other)
  Sender: FDA-Public Use
  Company Number: US-PFIZER INC-2016547997

PATIENT
  Age: 73 Year
  Sex: Female

DRUGS (3)
  1. PRISTIQ EXTENDED-RELEASE [Suspect]
     Active Substance: DESVENLAFAXINE SUCCINATE
     Indication: Depression
     Dosage: 50 MG, DAILY
     Route: 048
  2. PRISTIQ EXTENDED-RELEASE [Suspect]
     Active Substance: DESVENLAFAXINE SUCCINATE
     Indication: Affective disorder
     Dosage: 50 MG, 1X/DAY [1 TABLET ONCE A DAY FOR MOOD] 3 REFILLS
     Route: 048
  3. PRISTIQ EXTENDED-RELEASE [Suspect]
     Active Substance: DESVENLAFAXINE SUCCINATE
     Indication: Major depression
     Dosage: 50 MG, 1X/DAY (1 T PO ONCE A DAY FOR MOOD) 4 REFILLS
     Route: 048

REACTIONS (2)
  - Knee arthroplasty [Unknown]
  - General physical health deterioration [Unknown]
